FAERS Safety Report 19373016 (Version 1)
Quarter: 2021Q2

REPORT INFORMATION
  Report Type: Spontaneous
  Country: CL (occurrence: CL)
  Receive Date: 20210604
  Receipt Date: 20210604
  Transmission Date: 20210717
  Serious: Yes (Hospitalization, Other)
  Sender: FDA-Public Use
  Company Number: CL-ALS-000275

PATIENT
  Age: 65 Year
  Sex: Male

DRUGS (2)
  1. METFORMIN [Suspect]
     Active Substance: METFORMIN HYDROCHLORIDE
     Indication: TYPE 2 DIABETES MELLITUS
     Route: 065
  2. ATORVASTATIN [Suspect]
     Active Substance: ATORVASTATIN
     Indication: TYPE 2 DIABETES MELLITUS
     Route: 065

REACTIONS (15)
  - Foreign travel [Unknown]
  - Necrosis [Unknown]
  - Osteomyelitis [Unknown]
  - Drug ineffective [Unknown]
  - Purulent discharge [Unknown]
  - Diabetes mellitus inadequate control [Unknown]
  - Candida infection [Unknown]
  - Vascular operation [Unknown]
  - Angiopathy [Unknown]
  - Finger amputation [Unknown]
  - Cellulitis gangrenous [Unknown]
  - Diabetic foot [Unknown]
  - Ischaemia [Recovered/Resolved]
  - Osteitis [Unknown]
  - Foot amputation [Unknown]

NARRATIVE: CASE EVENT DATE: 201808
